FAERS Safety Report 11529028 (Version 1)
Quarter: 2015Q3

REPORT INFORMATION
  Report Type: Spontaneous
  Country: IT (occurrence: IT)
  Receive Date: 20150921
  Receipt Date: 20150921
  Transmission Date: 20151125
  Serious: Yes (Hospitalization)
  Sender: FDA-Public Use
  Company Number: IT-SUN PHARMACEUTICAL INDUSTRIES LTD-2015RR-103242

PATIENT

DRUGS (2)
  1. CIPROFLOXACIN. [Suspect]
     Active Substance: CIPROFLOXACIN
     Indication: OTITIS MEDIA ACUTE
     Dosage: 500 MG, DAILY
     Route: 048
     Dates: start: 20150825, end: 20150825
  2. NIMESULIDE [Suspect]
     Active Substance: NIMESULIDE
     Indication: OTITIS MEDIA ACUTE
     Dosage: 100 MG, DAILY
     Route: 048

REACTIONS (1)
  - Oedema [Unknown]

NARRATIVE: CASE EVENT DATE: 20150828
